FAERS Safety Report 7365831-7 (Version None)
Quarter: 2011Q1

REPORT INFORMATION
  Report Type: 
  Country: None (occurrence: None)
  Receive Date: 20110309
  Receipt Date: 20110222
  Transmission Date: 20110831
  Serious: Yes (Life-Threatening, Hospitalization)
  Sender: FDA-Public Use
  Company Number: B0703597A

PATIENT
  Age: 48 Year
  Sex: Male

DRUGS (3)
  1. LAMIVUDINE [Suspect]
     Indication: HIV INFECTION
  2. STAVUDINE [Suspect]
     Indication: HIV INFECTION
  3. EFAVIRENZ [Suspect]
     Indication: HIV INFECTION

REACTIONS (15)
  - HYPERPHOSPHATAEMIA [None]
  - NAUSEA [None]
  - VOMITING [None]
  - MEDIASTINAL DISORDER [None]
  - DELIRIUM [None]
  - HYPERCALCIURIA [None]
  - PYREXIA [None]
  - POLYURIA [None]
  - RENAL FAILURE ACUTE [None]
  - BLOOD PRESSURE INCREASED [None]
  - BLOOD POTASSIUM INCREASED [None]
  - IMMUNE RECONSTITUTION SYNDROME [None]
  - NOCTURIA [None]
  - LYMPH NODE TUBERCULOSIS [None]
  - COMA [None]
